FAERS Safety Report 21611701 (Version 1)
Quarter: 2022Q4

REPORT INFORMATION
  Report Type: Spontaneous
  Country: JP (occurrence: JP)
  Receive Date: 20221117
  Receipt Date: 20221117
  Transmission Date: 20230112
  Serious: Yes (Hospitalization)
  Sender: FDA-Public Use
  Company Number: JP-ALKEM LABORATORIES LIMITED-JP-ALKEM-2022-03622

PATIENT
  Age: 61 Year
  Sex: Female

DRUGS (1)
  1. MINOCYCLINE [Suspect]
     Active Substance: MINOCYCLINE HYDROCHLORIDE
     Indication: Mycobacterium abscessus infection
     Dosage: 100 MILLIGRAM, BID ( TWICE A DAY)
     Route: 065

REACTIONS (5)
  - Skin hyperpigmentation [Recovering/Resolving]
  - Bone hyperpigmentation [Recovering/Resolving]
  - Nail pigmentation [Recovering/Resolving]
  - Gingival hyperpigmentation [Recovering/Resolving]
  - Tooth discolouration [Recovering/Resolving]
